FAERS Safety Report 16630161 (Version 3)
Quarter: 2019Q4

REPORT INFORMATION
  Report Type: Report from Study
  Country: None (occurrence: BR)
  Receive Date: 20190725
  Receipt Date: 20191204
  Transmission Date: 20200122
  Serious: Yes (Hospitalization, Other)
  Sender: FDA-Public Use
  Company Number: BR-ABBVIE-19K-020-2865828-00

PATIENT
  Sex: Female
  Weight: 99 kg

DRUGS (1)
  1. HUMIRA [Suspect]
     Active Substance: ADALIMUMAB
     Indication: ANKYLOSING SPONDYLITIS
     Route: 058
     Dates: start: 20171106, end: 20190620

REACTIONS (5)
  - Immunodeficiency [Recovered/Resolved]
  - Weight abnormal [Unknown]
  - Klebsiella infection [Not Recovered/Not Resolved]
  - Toxicity to various agents [Recovered/Resolved]
  - Bacterial infection [Recovered/Resolved]

NARRATIVE: CASE EVENT DATE: 201907
